FAERS Safety Report 18472581 (Version 7)
Quarter: 2021Q2

REPORT INFORMATION
  Report Type: Report from Study
  Country: US (occurrence: US)
  Receive Date: 20201106
  Receipt Date: 20210505
  Transmission Date: 20210717
  Serious: Yes (Other)
  Sender: FDA-Public Use
  Company Number: US-GLAXOSMITHKLINE-US2020AMR220157

PATIENT
  Sex: Female

DRUGS (3)
  1. NIRAPARIB [Suspect]
     Active Substance: NIRAPARIB
     Indication: OVARIAN CANCER
     Dosage: 200 MG, QD
     Dates: start: 20201020, end: 20201023
  2. NIRAPARIB [Suspect]
     Active Substance: NIRAPARIB
     Indication: BREAST CANCER FEMALE
     Dosage: 200 MG, QD
     Dates: start: 20210212
  3. NIRAPARIB [Suspect]
     Active Substance: NIRAPARIB
     Dosage: 200 MG, QD
     Dates: end: 20210325

REACTIONS (14)
  - Drooling [Unknown]
  - Nausea [Not Recovered/Not Resolved]
  - Product use in unapproved indication [Unknown]
  - Product dose omission issue [Unknown]
  - Tongue paralysis [Not Recovered/Not Resolved]
  - Dysphagia [Not Recovered/Not Resolved]
  - Feeling abnormal [Unknown]
  - Abdominal discomfort [Not Recovered/Not Resolved]
  - Dry mouth [Not Recovered/Not Resolved]
  - Vomiting [Unknown]
  - Fatigue [Unknown]
  - Bell^s palsy [Not Recovered/Not Resolved]
  - Tongue movement disturbance [Unknown]
  - Insomnia [Unknown]
